FAERS Safety Report 4319772-X (Version None)
Quarter: 2004Q1

REPORT INFORMATION
  Report Type: 
  Country: None (occurrence: None)
  Receive Date: 20040319
  Receipt Date: 20040308
  Transmission Date: 20041129
  Serious: Yes (Other)
  Sender: FDA-Public Use
  Company Number: FR-GLAXOSMITHKLINE-B0326277A

PATIENT
  Age: 50 Year
  Sex: Female

DRUGS (2)
  1. ZYBAN [Suspect]
     Indication: EX-SMOKER
     Dosage: 150MG PER DAY
     Route: 048
     Dates: start: 20031120, end: 20031209
  2. NAXY [Concomitant]
     Indication: TRACHEITIS
     Dosage: 500MG PER DAY
     Route: 048
     Dates: start: 20031202, end: 20031206

REACTIONS (4)
  - ERYTHEMA [None]
  - FACE OEDEMA [None]
  - LARYNGEAL OEDEMA [None]
  - TRACHEITIS [None]
